FAERS Safety Report 11803473 (Version 1)
Quarter: 2015Q4

REPORT INFORMATION
  Report Type: Spontaneous
  Country: CA (occurrence: CA)
  Receive Date: 20151204
  Receipt Date: 20151204
  Transmission Date: 20160305
  Serious: Yes (Other)
  Sender: FDA-Public Use
  Company Number: CA-TEVA-613888ACC

PATIENT
  Age: 59 Year
  Sex: Female
  Weight: 50 kg

DRUGS (4)
  1. LIDOCAINE. [Suspect]
     Active Substance: LIDOCAINE
     Indication: PRODUCT USED FOR UNKNOWN INDICATION
     Route: 042
  2. MORPHINE [Concomitant]
     Active Substance: MORPHINE
  3. SUPRANE [Concomitant]
     Active Substance: DESFLURANE
  4. GABAPENTIN. [Suspect]
     Active Substance: GABAPENTIN
     Indication: ANALGESIC THERAPY
     Route: 048

REACTIONS (3)
  - Somnolence [Recovered/Resolved]
  - Hypoxia [Recovered/Resolved]
  - Respiratory depression [Recovered/Resolved]
